FAERS Safety Report 6013977-8 (Version None)
Quarter: 2008Q4

REPORT INFORMATION
  Report Type: 
  Country: None (occurrence: None)
  Receive Date: 20081219
  Receipt Date: 20081204
  Transmission Date: 20090506
  Serious: Yes (Hospitalization)
  Sender: FDA-Public Use
  Company Number: PL-PFIZER INC-2008099354

PATIENT

DRUGS (9)
  1. BLINDED *PLACEBO [Suspect]
     Indication: PULMONARY HYPERTENSION
     Dosage: 80 MG, 3X/DAY
     Dates: start: 20050914
  2. SILDENAFIL CITRATE [Suspect]
     Indication: PULMONARY HYPERTENSION
     Dosage: 80 MG, 3X/DAY
     Dates: start: 20050914
  3. MAGNESIUM [Concomitant]
     Dosage: UNK
     Route: 048
     Dates: start: 20060410, end: 20081110
  4. ACETYLSALICYLIC ACID [Concomitant]
     Dosage: UNK
     Route: 048
     Dates: start: 20050915
  5. OXYGEN [Concomitant]
     Dosage: UNK
     Route: 055
     Dates: start: 20050913
  6. ALL OTHER THERAPEUTIC PRODUCTS [Concomitant]
     Dosage: UNK
     Route: 048
     Dates: start: 20050915, end: 20081110
  7. METILDIGOXIN [Concomitant]
     Dosage: UNK
     Route: 048
     Dates: start: 20081031
  8. TIANEPTINE [Concomitant]
     Dosage: UNK
     Route: 048
     Dates: start: 20071112, end: 20081120
  9. SPIRONOLACTONE [Concomitant]
     Dosage: UNK
     Route: 048
     Dates: start: 20070305

REACTIONS (1)
  - PULMONARY HYPERTENSION [None]
